FAERS Safety Report 16569126 (Version 1)
Quarter: 2019Q3

REPORT INFORMATION
  Report Type: Spontaneous
  Country: US (occurrence: US)
  Receive Date: 20190714
  Receipt Date: 20190714
  Transmission Date: 20191004
  Serious: No
  Sender: FDA-Public Use
  Company Number: US-CELGENEUS-USA-20190701656

PATIENT
  Sex: Male

DRUGS (2)
  1. APREMILAST [Suspect]
     Active Substance: APREMILAST
     Dosage: 60 MILLIGRAM
     Route: 048
  2. APREMILAST [Suspect]
     Active Substance: APREMILAST
     Indication: PRODUCT USED FOR UNKNOWN INDICATION
     Dosage: STARTER PACK
     Route: 048

REACTIONS (2)
  - Headache [Unknown]
  - Product dose omission [Unknown]
